FAERS Safety Report 10791479 (Version 2)
Quarter: 2015Q3

REPORT INFORMATION
  Report Type: Spontaneous
  Country: US (occurrence: US)
  Receive Date: 20150213
  Receipt Date: 20150727
  Transmission Date: 20151125
  Serious: Yes (Other)
  Sender: FDA-Public Use
  Company Number: US-AMGEN-USASP2014076815

PATIENT
  Sex: Male

DRUGS (4)
  1. SIMETHICONE (DIMETHICONE) [Concomitant]
     Active Substance: DIMETHICONE
     Dosage: UNK UNK, AS NECESSARY
  2. ENBREL [Suspect]
     Active Substance: ETANERCEPT
     Indication: EXPOSURE DURING BREAST FEEDING
     Dosage: UNK
     Route: 063
  3. VITAMIN D                          /00107901/ [Concomitant]
     Active Substance: ERGOCALCIFEROL
     Dosage: UNK
  4. TYLENOL [Concomitant]
     Active Substance: ACETAMINOPHEN
     Dosage: UNK UNK, AS NECESSARY

REACTIONS (1)
  - Cardiac murmur [Unknown]
